FAERS Safety Report 8590695-3 (Version None)
Quarter: 2012Q3

REPORT INFORMATION
  Report Type: 
  Country: None (occurrence: None)
  Receive Date: 20120813
  Receipt Date: 20120808
  Transmission Date: 20120928
  Serious: Yes (Death, Hospitalization)
  Sender: FDA-Public Use
  Company Number: BE-ROCHE-1092407

PATIENT
  Sex: Female

DRUGS (18)
  1. ETOPOSIDE [Suspect]
     Dosage: CYCLE 1 DAY 3
  2. ETOPOSIDE [Suspect]
     Dates: start: 20070116
  3. IFOSFAMIDE [Suspect]
     Dosage: CYCLE 3 DAY 2
     Dates: start: 20061130
  4. MABTHERA [Suspect]
     Dosage: CYCLE 1 DAY 2
  5. CARBOPLATIN [Suspect]
     Indication: DIFFUSE LARGE B-CELL LYMPHOMA
     Dosage: CYCLE 1 DAY 2
     Dates: start: 20061019
  6. CARBOPLATIN [Suspect]
     Dosage: CYCLE 2 DAY 2
     Dates: start: 20061109
  7. MELPHALAN HYDROCHLORIDE [Concomitant]
  8. MABTHERA [Suspect]
     Dosage: CYCLE 3 DAY 1
     Dates: start: 20061129
  9. IFOSFAMIDE [Suspect]
     Indication: DIFFUSE LARGE B-CELL LYMPHOMA
     Dosage: CYCLE 1 DAY 2
     Dates: start: 20060219
  10. CYTARABINE [Concomitant]
     Dates: start: 20070116
  11. MABTHERA [Suspect]
     Dosage: CYCLE 2 DAY 1
     Dates: start: 20061108
  12. ETOPOSIDE [Suspect]
     Indication: DIFFUSE LARGE B-CELL LYMPHOMA
     Dosage: CYCLE 1 DAY 1
     Dates: start: 20061016
  13. FILGRASTIM [Suspect]
     Indication: DIFFUSE LARGE B-CELL LYMPHOMA
     Dosage: DOSE 6000 UG/DAY FROM D6 TO D13 OF CYCLE 1,2 AND 3
  14. ETOPOSIDE [Suspect]
     Dosage: CYCLE 1 DAY 2
  15. IFOSFAMIDE [Suspect]
     Dosage: CYCLE 2 DAY 2
     Dates: start: 20061109
  16. CARBOPLATIN [Suspect]
     Dosage: CYCLE 3 DAY 2
     Dates: start: 20061130
  17. MABTHERA [Suspect]
     Indication: DIFFUSE LARGE B-CELL LYMPHOMA
     Dosage: CYCLE 1 DAY 1
     Dates: start: 20061016
  18. CARMUSTINE [Concomitant]
     Dosage: BCNU
     Dates: start: 20070116

REACTIONS (1)
  - ACUTE MYELOID LEUKAEMIA [None]
